FAERS Safety Report 5719621-9 (Version None)
Quarter: 2008Q2

REPORT INFORMATION
  Report Type: 
  Country: None (occurrence: None)
  Receive Date: 20080428
  Receipt Date: 20080423
  Transmission Date: 20081010
  Serious: Yes (Life-Threatening, Other)
  Sender: FDA-Public Use
  Company Number: JP-BRISTOL-MYERS SQUIBB COMPANY-14142855

PATIENT
  Age: 72 Year
  Sex: Female

DRUGS (11)
  1. MITOMYCIN [Suspect]
     Indication: ANAL CANCER
     Dosage: FORM = INJ. ROUTE - DR
     Route: 040
     Dates: start: 20060208, end: 20060313
  2. FLUOROURACIL [Suspect]
     Indication: ANAL CANCER
     Dosage: FORM = INJECTION, STRENGTH 250, 750 MG/M2
     Route: 042
     Dates: start: 20060209, end: 20060314
  3. RADIOTHERAPY [Suspect]
     Indication: ANAL CANCER
     Dosage: 1 DOSAGE FORM = 45 GRAY (1ST COURSE) PER 15-25 FRACTIONS. A LOCAL BOOST OF 9 GRAY WAS ALSO GIVEN.
  4. BLOPRESS [Concomitant]
     Route: 048
     Dates: start: 20060125, end: 20060414
  5. ALFAROL [Concomitant]
     Route: 048
     Dates: start: 20060125, end: 20060414
  6. AZUNOL [Concomitant]
     Route: 065
     Dates: start: 20060213
  7. ZINC OXIDE [Concomitant]
     Route: 061
     Dates: start: 20060303
  8. EKSALB [Concomitant]
     Route: 061
     Dates: start: 20060303
  9. RINDERON [Concomitant]
     Route: 061
     Dates: start: 20080307
  10. LAXOBERON [Concomitant]
     Route: 048
     Dates: start: 20060311
  11. ENEMA CASEN [Concomitant]
     Route: 054
     Dates: start: 20060318

REACTIONS (3)
  - DERMATITIS [None]
  - LEUKOPENIA [None]
  - THROMBOCYTOPENIA [None]
